FAERS Safety Report 7277930-9 (Version None)
Quarter: 2011Q1

REPORT INFORMATION
  Report Type: 
  Country: None (occurrence: None)
  Receive Date: 20110207
  Receipt Date: 20110131
  Transmission Date: 20110831
  Serious: Yes (Hospitalization)
  Sender: FDA-Public Use
  Company Number: BR-ROCHE-756758

PATIENT
  Age: 44 Year
  Sex: Female

DRUGS (4)
  1. INFLIXIMAB [Suspect]
     Indication: RHEUMATOID ARTHRITIS
     Route: 065
  2. ACTEMRA [Suspect]
     Indication: RHEUMATOID ARTHRITIS
     Dosage: FORM: INFUSION
     Route: 065
     Dates: start: 20100917
  3. MABTHERA [Suspect]
     Indication: RHEUMATOID ARTHRITIS
     Route: 065
  4. ADALIMUMAB [Suspect]
     Indication: RHEUMATOID ARTHRITIS
     Route: 065

REACTIONS (3)
  - DRUG INEFFECTIVE [None]
  - FEELING OF DESPAIR [None]
  - RHEUMATOID ARTHRITIS [None]
